FAERS Safety Report 7093620-X (Version None)
Quarter: 2010Q4

REPORT INFORMATION
  Report Type: 
  Country: None (occurrence: None)
  Receive Date: 20101110
  Receipt Date: 20091026
  Transmission Date: 20110411
  Serious: No
  Sender: FDA-Public Use
  Company Number: US-KINGPHARMUSA00001-K200901341

PATIENT
  Age: 35 Year
  Sex: Female

DRUGS (1)
  1. EMBEDA [Suspect]
     Dosage: 60 MG, BID
     Route: 048

REACTIONS (2)
  - DISORIENTATION [None]
  - FATIGUE [None]
